FAERS Safety Report 5049633-2 (Version None)
Quarter: 2006Q3

REPORT INFORMATION
  Report Type: 
  Country: None (occurrence: None)
  Receive Date: 20060706
  Receipt Date: 20060623
  Transmission Date: 20061208
  Serious: Yes (Other)
  Sender: FDA-Public Use
  Company Number: GXKR2006PL03616

PATIENT
  Age: 44 Year
  Sex: Female

DRUGS (2)
  1. RIBAVIRIN (NGX)(RIBAVIRIN) UNKNOWN [Suspect]
     Indication: HEPATITIS C
     Dosage: 1000 MG, QD, UNK
  2. PEGASYS [Suspect]
     Indication: HEPATITIS
     Dosage: 180 UG, QW, UNK

REACTIONS (5)
  - FATIGUE [None]
  - INFLUENZA [None]
  - MALAISE [None]
  - VITILIGO [None]
  - WEIGHT DECREASED [None]
